FAERS Safety Report 16099753 (Version 2)
Quarter: 2019Q1

REPORT INFORMATION
  Report Type: Spontaneous
  Country: JP (occurrence: JP)
  Receive Date: 20190321
  Receipt Date: 20190326
  Transmission Date: 20190418
  Serious: Yes (Other)
  Sender: FDA-Public Use
  Company Number: JP-BAYER-2019-051883

PATIENT
  Age: 44 Year
  Sex: Male

DRUGS (2)
  1. BAYASPIRIN 100 MG [Suspect]
     Active Substance: ASPIRIN
     Indication: AORTIC DISSECTION
     Route: 048
  2. BAYASPIRIN 100 MG [Suspect]
     Active Substance: ASPIRIN
     Indication: PROSTHETIC VESSEL IMPLANTATION

REACTIONS (3)
  - Peripheral artery haematoma [Recovering/Resolving]
  - Vascular pseudoaneurysm [Recovering/Resolving]
  - Vascular pseudoaneurysm ruptured [Recovering/Resolving]
